FAERS Safety Report 8156667-8 (Version None)
Quarter: 2012Q1

REPORT INFORMATION
  Report Type: 
  Country: None (occurrence: None)
  Receive Date: 20120222
  Receipt Date: 20120217
  Transmission Date: 20120608
  Serious: Yes (Life-Threatening, Other)
  Sender: FDA-Public Use
  Company Number: US-BAYER-2011-079748

PATIENT
  Sex: Female
  Weight: 63.5 kg

DRUGS (7)
  1. DROSPIRENONE AND ETHINYL ESTRADIOL [Suspect]
  2. YAZ [Suspect]
  3. CIPRO [Concomitant]
  4. ASPIRIN [Concomitant]
     Dosage: DAILY
  5. YASMIN [Suspect]
  6. FENFLURAMINE W/PHENTERMINE [Concomitant]
  7. DARVOCET [Concomitant]

REACTIONS (8)
  - THROMBOSIS [None]
  - ANXIETY [None]
  - INJURY [None]
  - RETINAL ARTERY OCCLUSION [None]
  - CEREBROVASCULAR ACCIDENT [None]
  - ANHEDONIA [None]
  - AMAUROSIS FUGAX [None]
  - PAIN [None]
